FAERS Safety Report 5877928-9 (Version None)
Quarter: 2008Q3

REPORT INFORMATION
  Report Type: 
  Country: None (occurrence: None)
  Receive Date: 20080911
  Receipt Date: 20080902
  Transmission Date: 20090109
  Serious: Yes (Hospitalization)
  Sender: FDA-Public Use
  Company Number: B0528034A

PATIENT
  Age: 16 Year
  Sex: Female

DRUGS (1)
  1. SALBUMOL [Suspect]
     Indication: ASTHMATIC CRISIS
     Dosage: 1MGML SEE DOSAGE TEXT
     Route: 042
     Dates: start: 20080616, end: 20080616

REACTIONS (4)
  - ACCIDENTAL OVERDOSE [None]
  - DRUG ADMINISTRATION ERROR [None]
  - SENSE OF OPPRESSION [None]
  - TACHYCARDIA [None]
